FAERS Safety Report 7283790-2 (Version None)
Quarter: 2011Q1

REPORT INFORMATION
  Report Type: 
  Country: None (occurrence: None)
  Receive Date: 20110209
  Receipt Date: 20110207
  Transmission Date: 20110831
  Serious: Yes (Other)
  Sender: FDA-Public Use
  Company Number: DE-MERCK-1102DEU00031

PATIENT
  Age: 2 Year
  Sex: Female

DRUGS (1)
  1. SINGULAIR [Suspect]
     Indication: RESPIRATORY DISORDER
     Route: 048

REACTIONS (5)
  - AGGRESSION [None]
  - SLEEP DISORDER [None]
  - SELF INJURIOUS BEHAVIOUR [None]
  - CRYING [None]
  - PERSONALITY CHANGE [None]
